FAERS Safety Report 5461564-2 (Version None)
Quarter: 2007Q3

REPORT INFORMATION
  Report Type: 
  Country: None (occurrence: None)
  Receive Date: 20070920
  Receipt Date: 20070912
  Transmission Date: 20080115
  Serious: Yes (Death)
  Sender: FDA-Public Use
  Company Number: US-JNJFOC-20070902894

PATIENT
  Sex: Male

DRUGS (5)
  1. ULTRAM ER [Suspect]
     Indication: ANALGESIA
     Route: 048
  2. PREDNISONE [Concomitant]
     Indication: SYSTEMIC LUPUS ERYTHEMATOSUS
     Route: 065
  3. METHOTREXATE [Concomitant]
     Indication: SYSTEMIC LUPUS ERYTHEMATOSUS
     Route: 065
  4. MORPHINE [Concomitant]
     Indication: ANALGESIA
     Route: 065
  5. CYMBALTA [Concomitant]
     Indication: ANTIDEPRESSANT THERAPY
     Route: 065

REACTIONS (2)
  - SPINAL CORD NEOPLASM [None]
  - SYSTEMIC LUPUS ERYTHEMATOSUS [None]
